FAERS Safety Report 15806683 (Version 4)
Quarter: 2019Q3

REPORT INFORMATION
  Report Type: Report from Study
  Country: BR (occurrence: BR)
  Receive Date: 20190110
  Receipt Date: 20190913
  Transmission Date: 20191004
  Serious: Yes (Other)
  Sender: FDA-Public Use
  Company Number: PHHY2019BR001508

PATIENT
  Age: 66 Year
  Sex: Female
  Weight: 52 kg

DRUGS (2)
  1. COSENTYX [Suspect]
     Active Substance: SECUKINUMAB
     Indication: PSORIATIC ARTHROPATHY
     Dosage: 300 MG, QW
     Route: 058
  2. COSENTYX [Suspect]
     Active Substance: SECUKINUMAB
     Dosage: 300 MG, Q4W
     Route: 058

REACTIONS (22)
  - Loss of consciousness [Unknown]
  - Spinal disorder [Unknown]
  - Abdominal pain [Unknown]
  - Osteoarthritis [Unknown]
  - Vomiting [Unknown]
  - Psoriasis [Unknown]
  - Arthralgia [Unknown]
  - Macule [Unknown]
  - Pyrexia [Recovered/Resolved]
  - Erythema [Unknown]
  - Malaise [Unknown]
  - Therapeutic product effect incomplete [Unknown]
  - Skin haemorrhage [Recovered/Resolved]
  - Arthritis [Unknown]
  - Limb discomfort [Unknown]
  - Pruritus [Recovering/Resolving]
  - Gait disturbance [Unknown]
  - Viral infection [Unknown]
  - Cough [Unknown]
  - Osteopenia [Unknown]
  - Alopecia [Unknown]
  - Skin mass [Unknown]

NARRATIVE: CASE EVENT DATE: 20190420
